FAERS Safety Report 5688389-7 (Version None)
Quarter: 2008Q1

REPORT INFORMATION
  Report Type: 
  Country: None (occurrence: None)
  Receive Date: 20080331
  Receipt Date: 20080228
  Transmission Date: 20080703
  Serious: No
  Sender: FDA-Public Use
  Company Number: US-BAYER-200815469NA

PATIENT
  Age: 63 Year
  Sex: Female
  Weight: 48 kg

DRUGS (1)
  1. AVELOX [Suspect]
     Indication: SINUSITIS
     Dosage: UNIT DOSE: 400 MG
     Route: 048
     Dates: start: 20080219, end: 20080219

REACTIONS (4)
  - STOMACH DISCOMFORT [None]
  - TREMOR [None]
  - URTICARIA [None]
  - VOMITING [None]
